FAERS Safety Report 8430568-X (Version None)
Quarter: 2012Q2

REPORT INFORMATION
  Report Type: 
  Country: None (occurrence: None)
  Receive Date: 20120612
  Receipt Date: 20120604
  Transmission Date: 20120825
  Serious: Yes (Hospitalization)
  Sender: FDA-Public Use
  Company Number: JP-GLAXOSMITHKLINE-B0806811A

PATIENT
  Age: 8 Decade
  Sex: Female

DRUGS (7)
  1. PAXIL [Suspect]
     Route: 048
  2. LITHIUM CARBONATE [Concomitant]
     Dosage: 400MG PER DAY
     Route: 048
  3. OLANZAPINE [Suspect]
     Dosage: 5MG PER DAY
     Route: 048
  4. LEVOMEPROMAZINE MALEATE [Suspect]
     Dosage: 15MG PER DAY
     Route: 048
  5. DONEPEZIL HCL [Suspect]
     Dosage: 5MG PER DAY
     Route: 048
  6. ESTAZOLAM [Concomitant]
     Dosage: 2MG PER DAY
     Route: 048
  7. NITRAZEPAM [Concomitant]
     Dosage: 10MG PER DAY
     Route: 048

REACTIONS (9)
  - SLEEP PHASE RHYTHM DISTURBANCE [None]
  - DECREASED APPETITE [None]
  - TREMOR [None]
  - INSOMNIA [None]
  - MALAISE [None]
  - ANXIETY [None]
  - DRUG INTERACTION [None]
  - HYPOMANIA [None]
  - MIDDLE INSOMNIA [None]
